FAERS Safety Report 16305361 (Version 1)
Quarter: 2019Q2

REPORT INFORMATION
  Report Type: Spontaneous
  Country: US (occurrence: US)
  Receive Date: 20190511
  Receipt Date: 20190511
  Transmission Date: 20190711
  Serious: Yes (Hospitalization, Other)
  Sender: FDA-Public Use
  Company Number: None

PATIENT
  Age: 65 Year
  Sex: Female
  Weight: 67.5 kg

DRUGS (20)
  1. ALENDRONATE SODIUM TABLETS USP 70 MG [Suspect]
     Active Substance: ALENDRONATE SODIUM
     Indication: OSTEOPOROSIS
     Dosage: ?          OTHER FREQUENCY:ONCE/WEEK;?
     Route: 048
     Dates: start: 20070101, end: 20190131
  2. NP THYROID [Concomitant]
     Active Substance: LEVOTHYROXINE\LIOTHYRONINE
  3. LEVOTHYROXINE. [Concomitant]
     Active Substance: LEVOTHYROXINE
  4. CITRACAL [Concomitant]
     Active Substance: CALCIUM CITRATE
  5. TRAMADOL. [Concomitant]
     Active Substance: TRAMADOL
  6. VITAMIN C [Concomitant]
     Active Substance: ASCORBIC ACID
  7. D3 2000 IU [Concomitant]
  8. METHOCARBAMOL. [Concomitant]
     Active Substance: METHOCARBAMOL
  9. MAGNESIUM [Concomitant]
     Active Substance: MAGNESIUM
  10. VIT E200 [Concomitant]
  11. IBUPROPHEN [Concomitant]
     Active Substance: IBUPROFEN
  12. DOCUSATE [Concomitant]
     Active Substance: DOCUSATE
  13. DOXYLAMINE SUCCINATE. [Concomitant]
     Active Substance: DOXYLAMINE SUCCINATE
  14. VITAMIN D3 [Concomitant]
     Active Substance: CHOLECALCIFEROL
  15. MSM [Concomitant]
     Active Substance: DIMETHYL SULFONE
  16. SPECTRAVITE [Concomitant]
  17. RAMIPRIL. [Concomitant]
     Active Substance: RAMIPRIL
  18. CELECOXIB. [Concomitant]
     Active Substance: CELECOXIB
  19. ACETAMINOPHEN. [Concomitant]
     Active Substance: ACETAMINOPHEN
  20. LORADINE [Concomitant]
     Active Substance: LORATADINE

REACTIONS (2)
  - Stress fracture [None]
  - Pathological fracture [None]

NARRATIVE: CASE EVENT DATE: 20190330
